FAERS Safety Report 6280620-2 (Version None)
Quarter: 2009Q3

REPORT INFORMATION
  Report Type: 
  Country: None (occurrence: None)
  Receive Date: 20090724
  Receipt Date: 20081003
  Transmission Date: 20100115
  Serious: No
  Sender: FDA-Public Use
  Company Number: A0751467A

PATIENT
  Sex: Female

DRUGS (2)
  1. AVANDIA [Suspect]
     Dosage: 4MG TWICE PER DAY
     Route: 048
     Dates: start: 20060125, end: 20060330
  2. AVANDARYL [Suspect]
     Dates: start: 20060607, end: 20061117

REACTIONS (1)
  - ADVERSE EVENT [None]
